FAERS Safety Report 23571160 (Version 3)
Quarter: 2024Q1

REPORT INFORMATION
  Report Type: Report from Study
  Country: US (occurrence: US)
  Receive Date: 20240227
  Receipt Date: 20240319
  Transmission Date: 20240410
  Serious: Yes (Hospitalization)
  Sender: FDA-Public Use
  Company Number: US-Eisai-EC-2024-159065

PATIENT
  Age: 76 Year
  Sex: Male

DRUGS (1)
  1. LENVIMA [Suspect]
     Active Substance: LENVATINIB
     Indication: Thyroid cancer
     Dosage: MISSED 1 DOSE DUE TO DIARRHEA
     Route: 048
     Dates: end: 202402

REACTIONS (6)
  - Diarrhoea [Not Recovered/Not Resolved]
  - Oral pain [Not Recovered/Not Resolved]
  - Dysphagia [Unknown]
  - Dizziness [Unknown]
  - Insomnia [Unknown]
  - Tongue pruritus [Unknown]

NARRATIVE: CASE EVENT DATE: 20240101
